FAERS Safety Report 5934106-2 (Version None)
Quarter: 2008Q4

REPORT INFORMATION
  Report Type: 
  Country: None (occurrence: None)
  Receive Date: 20081028
  Receipt Date: 20081028
  Transmission Date: 20090506
  Serious: Yes (Hospitalization)
  Sender: FDA-Public Use
  Company Number: None

PATIENT
  Age: 83 Year
  Sex: Male
  Weight: 95.71 kg

DRUGS (1)
  1. AMOXICILLIN [Suspect]
     Indication: SINUSITIS
     Dosage: 500 MG TID PO
     Route: 048
     Dates: start: 20081020, end: 20081022

REACTIONS (4)
  - ERYTHEMA [None]
  - PRURITUS [None]
  - RASH MACULAR [None]
  - URTICARIA [None]
